FAERS Safety Report 22333318 (Version 1)
Quarter: 2023Q2

REPORT INFORMATION
  Report Type: Spontaneous
  Country: GB (occurrence: GB)
  Receive Date: 20230517
  Receipt Date: 20230517
  Transmission Date: 20230722
  Serious: Yes (Hospitalization, Other)
  Sender: FDA-Public Use
  Company Number: GB-MYLANLABS-2023M1026763

PATIENT
  Sex: Male
  Weight: 66.9 kg

DRUGS (10)
  1. CLOZARIL [Suspect]
     Active Substance: CLOZAPINE
     Indication: Schizophrenia
     Dosage: 50 MILLIGRAM, BID(TWICE DAILY (ON DOSE UP TITRATION)
     Route: 048
     Dates: start: 20230227, end: 20230308
  2. CLOZARIL [Suspect]
     Active Substance: CLOZAPINE
     Indication: Schizoaffective disorder
  3. ARIPIPRAZOLE [Concomitant]
     Active Substance: ARIPIPRAZOLE
     Indication: Schizophrenia
     Dosage: 15 MILLIGRAM, QD
     Route: 048
  4. ARIPIPRAZOLE [Concomitant]
     Active Substance: ARIPIPRAZOLE
     Indication: Schizoaffective disorder
     Dosage: 7.5 MILLIGRAM, QD (REDUCED FROM 15MG DAILY ON 6-MAR-2023)
     Route: 048
     Dates: start: 20230307, end: 20230310
  5. VALPROIC ACID [Concomitant]
     Active Substance: VALPROIC ACID
     Indication: Schizophrenia
     Dosage: 250 MILLIGRAM, BID
     Route: 048
  6. VALPROIC ACID [Concomitant]
     Active Substance: VALPROIC ACID
     Indication: Schizoaffective disorder
     Dosage: 500 MILLIGRAM, BID (INCREAS ED FROM 250MG BD ON THE 10-FEB-2023)
     Route: 048
     Dates: start: 20230220
  7. SENNA [Concomitant]
     Active Substance: SENNA LEAF\SENNOSIDES\SENNOSIDES A AND B
     Indication: Constipation
     Dosage: 15 MILLIGRAM, QD (ONCE DAILY)
     Route: 048
     Dates: start: 20230306
  8. AMLODIPINE [Concomitant]
     Active Substance: AMLODIPINE BESYLATE
     Indication: Hypertension
     Dosage: 5 MILLIGRAM, QD (ONCE DAILY)
     Route: 048
     Dates: start: 20221017
  9. SIMVASTATIN [Concomitant]
     Active Substance: SIMVASTATIN
     Indication: Cardiovascular event prophylaxis
     Dosage: 40 MILLIGRAM, QD (ONCE DAILY)
     Route: 048
     Dates: start: 20221017
  10. LORAZEPAM [Concomitant]
     Active Substance: LORAZEPAM
     Indication: Agitation
     Dosage: 0.5 MILLIGRAM (AS REQUIRED FOR AGITATION)
     Route: 048
     Dates: start: 20230210, end: 20230222

REACTIONS (6)
  - C-reactive protein increased [Not Recovered/Not Resolved]
  - Dysphonia [Recovered/Resolved]
  - Globulins increased [Unknown]
  - Neuroleptic malignant syndrome [Recovered/Resolved]
  - Somnolence [Recovered/Resolved]
  - Neutrophilia [Unknown]

NARRATIVE: CASE EVENT DATE: 20230304
